FAERS Safety Report 25185490 (Version 1)
Quarter: 2025Q2

REPORT INFORMATION
  Report Type: Spontaneous
  Country: US (occurrence: None)
  Receive Date: 20250410
  Receipt Date: 20250410
  Transmission Date: 20250717
  Serious: Yes (unspecified)
  Sender: FDA-CTU
  Company Number: None

PATIENT
  Age: 33 Year
  Sex: Male

DRUGS (3)
  1. ADVANCE WHITE EXTREME WHITENING TARTAR CONTROL [Suspect]
     Active Substance: SODIUM FLUORIDE
     Indication: Dental disorder prophylaxis
     Dosage: OTHER STRENGTH : TUBE  6OZ/170G;??TWICE ADAY ORAL
     Route: 048
     Dates: start: 20240101, end: 20250410
  2. ADVANCE WHITE EXTREME WHITENING TARTAR CONTROL [Suspect]
     Active Substance: SODIUM FLUORIDE
     Indication: Dental caries
  3. ADVANCE WHITE EXTREME WHITENING TARTAR CONTROL [Suspect]
     Active Substance: SODIUM FLUORIDE
     Indication: Product used for unknown indication

REACTIONS (2)
  - Lip pain [None]
  - Allergic reaction to excipient [None]

NARRATIVE: CASE EVENT DATE: 20240101
